FAERS Safety Report 10575723 (Version 1)
Quarter: 2014Q4

REPORT INFORMATION
  Report Type: Spontaneous
  Country: US (occurrence: US)
  Receive Date: 20141111
  Receipt Date: 20141111
  Transmission Date: 20150529
  Serious: No
  Sender: FDA-Public Use
  Company Number: US-PFIZER INC-2014304592

PATIENT
  Age: 64 Year
  Sex: Female

DRUGS (3)
  1. TETANUS [Suspect]
     Active Substance: UNSPECIFIED INGREDIENT
     Dosage: UNK
  2. PRIMIDONE. [Suspect]
     Active Substance: PRIMIDONE
     Dosage: UNK
  3. ZOLOFT [Suspect]
     Active Substance: SERTRALINE HYDROCHLORIDE
     Dosage: UNK

REACTIONS (1)
  - Drug hypersensitivity [Unknown]
